FAERS Safety Report 10985045 (Version 1)
Quarter: 2015Q1

REPORT INFORMATION
  Report Type: Spontaneous
  Country: US (occurrence: None)
  Receive Date: 20150313
  Receipt Date: 20150313
  Transmission Date: 20150721
  Serious: Yes (Other)
  Sender: FDA-Public Use
  Company Number: 1435546

PATIENT
  Age: 66 Year
  Sex: Female
  Weight: 65.77 kg

DRUGS (10)
  1. ZYRTEC [Concomitant]
     Active Substance: CETIRIZINE HYDROCHLORIDE
  2. NEXIUM [Concomitant]
     Active Substance: ESOMEPRAZOLE MAGNESIUM
  3. BESTRADIOL [Concomitant]
  4. BENADRYL (UNITED STATES) (DIPHENHYDRAMINE HYDROCHLORIDE) [Concomitant]
  5. XOLAIR [Suspect]
     Active Substance: OMALIZUMAB
     Indication: ASTHMA
     Dosage: 1 IN 1 M
     Route: 058
     Dates: start: 20140710
  6. PREDNISONE. [Concomitant]
     Active Substance: PREDNISONE
  7. RECLAST [Concomitant]
     Active Substance: ZOLEDRONIC ACID
  8. TOPROL (METOPROLOL SUCCINATE) [Concomitant]
  9. XOLAIR [Suspect]
     Active Substance: OMALIZUMAB
     Indication: URTICARIA
     Dosage: 1 IN 1 M
     Route: 058
     Dates: start: 20140710
  10. DEMEROL (PETHIDINE HYDROCHLORIDE) [Concomitant]

REACTIONS (14)
  - Chest discomfort [None]
  - Ear pain [None]
  - Tongue disorder [None]
  - Pruritus [None]
  - Headache [None]
  - Rhinitis [None]
  - Paraesthesia oral [None]
  - Rash [None]
  - Fatigue [None]
  - Blood pressure decreased [None]
  - Arthralgia [None]
  - Eye pruritus [None]
  - Dyspnoea [None]
  - Oropharyngeal pain [None]

NARRATIVE: CASE EVENT DATE: 20140804
